FAERS Safety Report 14509533 (Version 1)
Quarter: 2018Q1

REPORT INFORMATION
  Report Type: Spontaneous
  Country: US (occurrence: US)
  Receive Date: 20180207
  Receipt Date: 20180207
  Transmission Date: 20180509
  Serious: Yes (Other)
  Sender: FDA-Public Use
  Company Number: None

PATIENT
  Age: 39 Year
  Weight: 58.97 kg

DRUGS (1)
  1. BUPRENORPHINE/NALAXONE 8-2MG [Suspect]
     Active Substance: BUPRENORPHINE\NALOXONE
     Indication: DRUG DEPENDENCE
     Dosage: 8-2 MG, 2 DAILY, SUBLINGUAL TABS
     Route: 060
     Dates: start: 20170419, end: 20180131

REACTIONS (3)
  - Constipation [None]
  - Nausea [None]
  - Pain [None]

NARRATIVE: CASE EVENT DATE: 20170414
